FAERS Safety Report 5804005-5 (Version None)
Quarter: 2008Q3

REPORT INFORMATION
  Report Type: 
  Country: None (occurrence: None)
  Receive Date: 20080703
  Receipt Date: 20080624
  Transmission Date: 20090109
  Serious: Yes (Other)
  Sender: FDA-Public Use
  Company Number: JPI-P-004008

PATIENT
  Age: 43 Year
  Sex: Female

DRUGS (7)
  1. XYREM [Suspect]
     Indication: CATAPLEXY
     Dosage: ORAL, 9 GM (4.5 MG, 2 IN 1 D), ORAL
     Route: 048
  2. ARIPIPRAZOLE (APIPIPRAZOLE) [Concomitant]
  3. DIVALPROEX SODIUM [Concomitant]
  4. FENOFIBRATE [Concomitant]
  5. TRIMETHOPRIM AND SULFAMETHOXAZOLE (BACTRIM /00086101/) [Concomitant]
  6. FUROSEMIDE [Concomitant]
  7. GLYBURIDE AND METFORMIN (GLIBOMET) [Concomitant]

REACTIONS (1)
  - CONVULSION [None]
